FAERS Safety Report 5131814-0 (Version None)
Quarter: 2006Q4

REPORT INFORMATION
  Report Type: 
  Country: None (occurrence: None)
  Receive Date: 20061016
  Receipt Date: 20061003
  Transmission Date: 20070319
  Serious: Yes (Death)
  Sender: FDA-Public Use
  Company Number: 2006119476

PATIENT
  Sex: Male

DRUGS (2)
  1. ZIPRASIDONE HCL [Suspect]
     Dosage: 160 NG (DAILY), ORAL
     Route: 048
  2. AMISULPRIDE (AMISULPRIDE) [Concomitant]

REACTIONS (1)
  - ARRHYTHMIA [None]
